FAERS Safety Report 22357281 (Version 1)
Quarter: 2023Q2

REPORT INFORMATION
  Report Type: Spontaneous
  Country: US (occurrence: US)
  Receive Date: 20230524
  Receipt Date: 20230524
  Transmission Date: 20230721
  Serious: No
  Sender: FDA-Public Use
  Company Number: US-002147023-NVSC2023US115406

PATIENT
  Sex: Female

DRUGS (2)
  1. TIGECYCLINE [Suspect]
     Active Substance: TIGECYCLINE
     Indication: Mycobacterium abscessus infection
     Dosage: UNK
     Route: 065
  2. OMADACYCLINE [Suspect]
     Active Substance: OMADACYCLINE
     Indication: Mycobacterium abscessus infection
     Dosage: UNK
     Route: 065

REACTIONS (5)
  - Abdominal discomfort [Unknown]
  - Nausea [Unknown]
  - Fatigue [Unknown]
  - Decreased appetite [Unknown]
  - Diarrhoea [Unknown]
